FAERS Safety Report 23761624 (Version 1)
Quarter: 2024Q2

REPORT INFORMATION
  Report Type: Spontaneous
  Country: AT (occurrence: AT)
  Receive Date: 20240419
  Receipt Date: 20240419
  Transmission Date: 20240716
  Serious: Yes (Hospitalization)
  Sender: FDA-Public Use
  Company Number: AT-BoehringerIngelheim-2024-BI-022724

PATIENT
  Age: 81 Year
  Sex: Male

DRUGS (2)
  1. OFEV [Suspect]
     Active Substance: NINTEDANIB
     Indication: Idiopathic pulmonary fibrosis
     Dosage: APPROX. 2 MONTHS
     Route: 048
  2. OFEV [Suspect]
     Active Substance: NINTEDANIB
     Dosage: APPROX. 2 MONTHS

REACTIONS (1)
  - Haematuria [Unknown]
